FAERS Safety Report 7594719-1 (Version None)
Quarter: 2011Q2

REPORT INFORMATION
  Report Type: 
  Country: None (occurrence: None)
  Receive Date: 20110609
  Receipt Date: 20110502
  Transmission Date: 20111010
  Serious: No
  Sender: FDA-Public Use
  Company Number: TH-2011-00111

PATIENT
  Age: 43 Year
  Sex: Male

DRUGS (1)
  1. EGRIFTA [Suspect]
     Indication: LIPODYSTROPHY ACQUIRED
     Dosage: SUBCUTANEOUS
     Route: 058

REACTIONS (2)
  - NECK PAIN [None]
  - MUSCULOSKELETAL PAIN [None]
